FAERS Safety Report 16438789 (Version 1)
Quarter: 2019Q2

REPORT INFORMATION
  Report Type: Spontaneous
  Country: GB (occurrence: GB)
  Receive Date: 20190617
  Receipt Date: 20190617
  Transmission Date: 20190711
  Serious: Yes (Disabling, Other)
  Sender: FDA-Public Use
  Company Number: GB-DRREDDYS-GER/UKI/19/0110997

PATIENT
  Age: 49 Year
  Sex: Male

DRUGS (2)
  1. CIPROFLOXACIN. [Suspect]
     Active Substance: CIPROFLOXACIN
     Indication: PROSTATITIS
     Route: 048
     Dates: start: 20180801, end: 20180828
  2. INFLUENZA VIRUS [Concomitant]
     Active Substance: INFLUENZA VIRUS VACCINE
     Indication: PRODUCT USED FOR UNKNOWN INDICATION
     Dates: start: 20180912

REACTIONS (32)
  - Feeling abnormal [Unknown]
  - Palpitations [Unknown]
  - Nephrolithiasis [Unknown]
  - Acne [Unknown]
  - Head discomfort [Unknown]
  - Pain in jaw [Unknown]
  - Abdominal distension [Unknown]
  - Balance disorder [Unknown]
  - Photophobia [Unknown]
  - Fatigue [Unknown]
  - Dizziness [Unknown]
  - Disturbance in attention [Unknown]
  - Lymphadenopathy [Unknown]
  - Memory impairment [Unknown]
  - Neck pain [Unknown]
  - Rash [Unknown]
  - Faeces soft [Unknown]
  - Altered visual depth perception [Unknown]
  - Pruritus [Unknown]
  - Headache [Unknown]
  - Renal pain [Unknown]
  - Pain in extremity [Unknown]
  - Arthralgia [Unknown]
  - Hyperacusis [Unknown]
  - Joint noise [Unknown]
  - Skin sensitisation [Unknown]
  - Eye pain [Unknown]
  - Thirst [Unknown]
  - Sleep disorder [Unknown]
  - Coordination abnormal [Unknown]
  - Tendon pain [Unknown]
  - Tinnitus [Unknown]

NARRATIVE: CASE EVENT DATE: 201809
